FAERS Safety Report 13087223 (Version 2)
Quarter: 2017Q1

REPORT INFORMATION
  Report Type: Report from Study
  Country: IT (occurrence: IT)
  Receive Date: 20170105
  Receipt Date: 20170217
  Transmission Date: 20170428
  Serious: Yes (Other)
  Sender: FDA-Public Use
  Company Number: IT-ACCORD-047078

PATIENT
  Age: 74 Year
  Sex: Female

DRUGS (8)
  1. BISOPROLOL [Suspect]
     Active Substance: BISOPROLOL
     Indication: PRODUCT USED FOR UNKNOWN INDICATION
     Route: 048
  2. DEURSIL [Concomitant]
     Active Substance: URSODIOL
     Dosage: 450 MG
     Route: 048
  3. ADENURIC [Concomitant]
     Active Substance: FEBUXOSTAT
     Dosage: 80 MG
     Route: 048
  4. ELIQUIS [Suspect]
     Active Substance: APIXABAN
     Indication: PRODUCT USED FOR UNKNOWN INDICATION
     Dosage: 5 MG DAILY
     Route: 048
  5. FUROSEMIDE. [Suspect]
     Active Substance: FUROSEMIDE
     Indication: PRODUCT USED FOR UNKNOWN INDICATION
     Dosage: 375 MG DAILY
     Route: 048
  6. RAMIPRIL. [Suspect]
     Active Substance: RAMIPRIL
     Indication: PRODUCT USED FOR UNKNOWN INDICATION
     Route: 048
  7. SIMVASTATIN. [Concomitant]
     Active Substance: SIMVASTATIN
     Dosage: 20 MG
     Route: 048
  8. LUVION [Concomitant]
     Active Substance: CANRENONE
     Dosage: 50 MG
     Route: 048

REACTIONS (3)
  - Hypotension [Recovered/Resolved]
  - Vertigo [Recovered/Resolved]
  - Vision blurred [Recovered/Resolved]

NARRATIVE: CASE EVENT DATE: 20160824
